FAERS Safety Report 20403288 (Version 2)
Quarter: 2022Q1

REPORT INFORMATION
  Report Type: Spontaneous
  Country: US (occurrence: US)
  Receive Date: 20220131
  Receipt Date: 20220201
  Transmission Date: 20220423
  Serious: No
  Sender: FDA-Public Use
  Company Number: US-ABBVIE-21K-163-4168326-00

PATIENT
  Sex: Male
  Weight: 72.640 kg

DRUGS (5)
  1. HUMIRA [Suspect]
     Active Substance: ADALIMUMAB
     Indication: Psoriasis
     Route: 058
     Dates: start: 2018, end: 2018
  2. LYRICA [Concomitant]
     Active Substance: PREGABALIN
     Indication: Neuralgia
  3. SOMA [Concomitant]
     Active Substance: CARISOPRODOL
     Indication: Back pain
  4. ATORVASTATIN [Concomitant]
     Active Substance: ATORVASTATIN
     Indication: Blood cholesterol increased
     Route: 048
     Dates: start: 2011, end: 202101
  5. ATORVASTATIN [Concomitant]
     Active Substance: ATORVASTATIN
     Route: 048
     Dates: start: 202101, end: 20210930

REACTIONS (3)
  - Skin fissures [Recovered/Resolved]
  - Pain in extremity [Recovered/Resolved]
  - Pain [Recovered/Resolved]

NARRATIVE: CASE EVENT DATE: 20180101
